FAERS Safety Report 8597489-3 (Version None)
Quarter: 2012Q3

REPORT INFORMATION
  Report Type: 
  Country: None (occurrence: None)
  Receive Date: 20120802
  Receipt Date: 20120717
  Transmission Date: 20120928
  Serious: Yes (Other)
  Sender: FDA-Public Use
  Company Number: TPA2012A01304

PATIENT
  Age: 57 Year
  Sex: Female
  Weight: 58.0604 kg

DRUGS (5)
  1. GLYBURIDE [Concomitant]
  2. METFORMIN HCL [Concomitant]
  3. SITAGLIPTIN PHOSPHATE [Concomitant]
  4. GLIPIZIDE [Concomitant]
  5. ACTOS [Suspect]
     Indication: TYPE 2 DIABETES MELLITUS
     Dates: start: 20020301, end: 20110201

REACTIONS (1)
  - BLADDER CANCER [None]
